FAERS Safety Report 13783404 (Version 2)
Quarter: 2017Q3

REPORT INFORMATION
  Report Type: Spontaneous
  Country: AU (occurrence: AU)
  Receive Date: 20170724
  Receipt Date: 20170811
  Transmission Date: 20171127
  Serious: Yes (Disabling)
  Sender: FDA-Public Use
  Company Number: AU-AMGEN-AUSSP2017018110

PATIENT
  Age: 74 Year
  Sex: Female
  Weight: 66.4 kg

DRUGS (7)
  1. NORVASC [Concomitant]
     Active Substance: AMLODIPINE BESYLATE
  2. THYROXINE [Concomitant]
     Active Substance: LEVOTHYROXINE
  3. OROXINE [Concomitant]
     Active Substance: LEVOTHYROXINE SODIUM
  4. AMILORIDE [Concomitant]
     Active Substance: AMILORIDE
  5. STILNOX [Concomitant]
     Active Substance: ZOLPIDEM TARTRATE
  6. PROLIA [Suspect]
     Active Substance: DENOSUMAB
     Indication: OSTEOPOROSIS POSTMENOPAUSAL
     Dosage: 60 MG, Q6MO
     Route: 058
     Dates: start: 20161027
  7. CELEBREX [Concomitant]
     Active Substance: CELECOXIB

REACTIONS (9)
  - Feeling hot [Not Recovered/Not Resolved]
  - Discomfort [Not Recovered/Not Resolved]
  - Pruritus generalised [Not Recovered/Not Resolved]
  - Flushing [Not Recovered/Not Resolved]
  - Joint dislocation [Not Recovered/Not Resolved]
  - Skin burning sensation [Not Recovered/Not Resolved]
  - Angiopathy [Not Recovered/Not Resolved]
  - Paraesthesia [Not Recovered/Not Resolved]
  - Oedema peripheral [Not Recovered/Not Resolved]

NARRATIVE: CASE EVENT DATE: 201610
